FAERS Safety Report 8903779 (Version 1)
Quarter: 2012Q4

REPORT INFORMATION
  Report Type: 
  Country: US (occurrence: US)
  Receive Date: 20121113
  Receipt Date: 20121113
  Transmission Date: 20130627
  Serious: No
  Sender: FDA-Public Use
  Company Number: US-AMGEN-USASP2012010000

PATIENT
  Sex: Female

DRUGS (16)
  1. ENBREL [Suspect]
     Indication: PRODUCT USED FOR UNKNOWN INDICATION
     Dosage: 50 mg, qwk
     Route: 058
     Dates: start: 2004
  2. SINGULAIR [Concomitant]
     Dosage: 4 mg, UNK
  3. PRISTIQ [Concomitant]
     Dosage: 50 mg, UNK
  4. XANAX [Concomitant]
     Dosage: .5 mg, UNK
  5. ZYRTEC [Concomitant]
     Dosage: 5 mg, UNK
  6. NORVASC [Concomitant]
     Dosage: 2.5 mg, UNK
  7. TRAMADOL HCL [Concomitant]
     Dosage: 50 mg, UNK
  8. ADVAIR [Concomitant]
  9. SKELAXIN                           /00611501/ [Concomitant]
     Dosage: 800 mg, UNK
  10. ACIDOPHILUS [Concomitant]
  11. CALCIUM 500+D [Concomitant]
  12. MULTIVITAMIN                       /00097801/ [Concomitant]
  13. ASPIRIN [Concomitant]
     Dosage: 81 mg, UNK
  14. OMNARIS [Concomitant]
  15. VITAMIN D /00107901/ [Concomitant]
  16. ESTROVEN [Concomitant]

REACTIONS (1)
  - Injection site bruising [Unknown]
